FAERS Safety Report 6302175-6 (Version None)
Quarter: 2009Q3

REPORT INFORMATION
  Report Type: 
  Country: None (occurrence: None)
  Receive Date: 20090810
  Receipt Date: 20071030
  Transmission Date: 20100115
  Serious: Yes (Other)
  Sender: FDA-Public Use
  Company Number: US-ASTRAZENECA-2006UW11945

PATIENT
  Age: 515 Month
  Sex: Female
  Weight: 112 kg

DRUGS (20)
  1. SEROQUEL [Suspect]
     Indication: INSOMNIA
     Route: 048
     Dates: start: 20010101, end: 20060101
  2. SEROQUEL [Suspect]
     Dosage: 200 TO 600 MG
     Route: 048
     Dates: start: 20021209, end: 20040907
  3. SEROQUEL [Suspect]
     Route: 048
     Dates: start: 20041119
  4. ABILIFY [Concomitant]
     Dosage: 15-20MG
  5. ABILIFY [Concomitant]
     Dosage: 15 TO 30 MG
     Dates: start: 20021130
  6. EFFEXOR [Concomitant]
  7. WELLBUTRIN SR [Concomitant]
     Dosage: 150 TO 300 MG
     Dates: start: 20030107
  8. AMBIEN [Concomitant]
     Indication: INSOMNIA
     Dates: start: 19980821
  9. PRILOSEC [Concomitant]
  10. LIPITOR [Concomitant]
     Indication: HYPERLIPIDAEMIA
  11. TOPAMAX [Concomitant]
     Dates: start: 20021209
  12. ATIVAN [Concomitant]
     Dates: start: 20021217
  13. ULTRAM [Concomitant]
     Dates: start: 20021223
  14. HYDROCODONE [Concomitant]
     Dates: start: 20021223
  15. SKELAXIN [Concomitant]
     Dates: start: 20021224
  16. ALBUTEROL [Concomitant]
     Dosage: 90 MCG
     Dates: start: 19980904
  17. ACCOLATE [Concomitant]
     Route: 048
     Dates: start: 19980821
  18. TEMAZEPAM [Concomitant]
     Dates: start: 20040811
  19. BUSPIRONE HCL [Concomitant]
     Dates: start: 20040903
  20. TRAZODONE HCL [Concomitant]
     Dosage: 100 TO 300 MG
     Dates: start: 19980828

REACTIONS (4)
  - DIABETES MELLITUS [None]
  - DIABETIC FOOT [None]
  - DIABETIC NEUROPATHY [None]
  - TYPE 2 DIABETES MELLITUS [None]
